FAERS Safety Report 25623881 (Version 1)
Quarter: 2025Q3

REPORT INFORMATION
  Report Type: Spontaneous
  Country: US (occurrence: US)
  Receive Date: 20250730
  Receipt Date: 20250730
  Transmission Date: 20251020
  Serious: No
  Sender: Tarsus Pharmaceuticals
  Company Number: US-TARSUS PHARMACEUTICALS-TSP-US-2025-000445

PATIENT

DRUGS (1)
  1. XDEMVY [Suspect]
     Active Substance: LOTILANER
     Indication: Product used for unknown indication
     Route: 065
     Dates: start: 20250504

REACTIONS (9)
  - Madarosis [Unknown]
  - Alopecia [Unknown]
  - Dry mouth [Unknown]
  - Eye irritation [Unknown]
  - Tongue dry [Unknown]
  - Chapped lips [Unknown]
  - Eye pain [Unknown]
  - Punctate keratosis [Unknown]
  - Vision blurred [Unknown]

NARRATIVE: CASE EVENT DATE: 20250501
